FAERS Safety Report 14313445 (Version 6)
Quarter: 2018Q3

REPORT INFORMATION
  Report Type: Spontaneous
  Country: JP (occurrence: JP)
  Receive Date: 20171221
  Receipt Date: 20180919
  Transmission Date: 20181010
  Serious: Yes (Death, Life-Threatening, Other)
  Sender: FDA-Public Use
  Company Number: JP-CELGENEUS-JPN-20171206865

PATIENT
  Age: 68 Year
  Sex: Male
  Weight: 66 kg

DRUGS (2)
  1. VIDAZA [Suspect]
     Active Substance: AZACITIDINE
     Indication: CHRONIC MYELOMONOCYTIC LEUKAEMIA
     Dosage: 130 MILLIGRAM
     Route: 058
     Dates: start: 20171130, end: 20171205
  2. VIDAZA [Suspect]
     Active Substance: AZACITIDINE
     Dosage: 75 MILLIGRAM/SQ. METER
     Route: 058
     Dates: start: 20171202, end: 20171207

REACTIONS (5)
  - Gastrointestinal haemorrhage [Recovering/Resolving]
  - Chronic obstructive pulmonary disease [Recovered/Resolved with Sequelae]
  - Pneumonia bacterial [Recovered/Resolved with Sequelae]
  - Renal failure [Fatal]
  - Systemic candida [Fatal]

NARRATIVE: CASE EVENT DATE: 20171202
